FAERS Safety Report 11132033 (Version 1)
Quarter: 2015Q2

REPORT INFORMATION
  Report Type: Spontaneous
  Country: None (occurrence: None)
  Receive Date: 20150521
  Receipt Date: 20150521
  Transmission Date: 20150821
  Serious: Yes (Other)
  Sender: FDA-Public Use
  Company Number: None

PATIENT
  Age: 23 Year
  Sex: Female
  Weight: 70.31 kg

DRUGS (3)
  1. MONTELUKAST SOD [Suspect]
     Active Substance: MONTELUKAST SODIUM
     Indication: MULTIPLE ALLERGIES
     Dosage: 1 PILL AT NIGHT, ONCE DAILY, TAKEN BY MOUTH
     Route: 048
     Dates: start: 20150508, end: 20150519
  2. LO LOESTRIN FE [Concomitant]
     Active Substance: ETHINYL ESTRADIOL\NORETHINDRONE ACETATE
  3. ZADITOR EYE DROPS [Concomitant]

REACTIONS (5)
  - Anxiety [None]
  - Tachyphrenia [None]
  - Abnormal behaviour [None]
  - Memory impairment [None]
  - Depression [None]

NARRATIVE: CASE EVENT DATE: 20150520
